FAERS Safety Report 11484918 (Version 1)
Quarter: 2015Q3

REPORT INFORMATION
  Report Type: Spontaneous
  Country: US (occurrence: US)
  Receive Date: 20150903
  Receipt Date: 20150903
  Transmission Date: 20151125
  Serious: No
  Sender: FDA-Public Use
  Company Number: US-ELI_LILLY_AND_COMPANY-US201209000558

PATIENT
  Sex: Female

DRUGS (2)
  1. CYMBALTA [Suspect]
     Active Substance: DULOXETINE HYDROCHLORIDE
     Indication: FIBROMYALGIA
     Dosage: 30 MG, BID
  2. CYMBALTA [Suspect]
     Active Substance: DULOXETINE HYDROCHLORIDE
     Dosage: 60 MG, EACH EVENING

REACTIONS (8)
  - Sleep disorder [Unknown]
  - Nervousness [Unknown]
  - Weight decreased [Unknown]
  - Decreased interest [Unknown]
  - Cough [Unknown]
  - Dysphonia [Unknown]
  - Feeling jittery [Unknown]
  - Thirst [Unknown]
